FAERS Safety Report 9732494 (Version 1)
Quarter: 2013Q4

REPORT INFORMATION
  Report Type: Spontaneous
  Country: US (occurrence: US)
  Receive Date: 20131205
  Receipt Date: 20131205
  Transmission Date: 20140711
  Serious: Yes (Death, Hospitalization)
  Sender: FDA-Public Use
  Company Number: US-TEVA-448791USA

PATIENT
  Age: 78 Year
  Sex: Female

DRUGS (3)
  1. FENTANYL [Suspect]
     Route: 048
  2. HYDROMORPHONE [Suspect]
  3. FENTANYL PATCH [Suspect]

REACTIONS (6)
  - Cardiac arrest [Fatal]
  - Respiratory arrest [Fatal]
  - Conduction disorder [Fatal]
  - Respiratory depression [Fatal]
  - Somnolence [Fatal]
  - Lethargy [Fatal]
